FAERS Safety Report 21337421 (Version 1)
Quarter: 2022Q3

REPORT INFORMATION
  Report Type: Spontaneous
  Country: BE (occurrence: None)
  Receive Date: 20220915
  Receipt Date: 20220915
  Transmission Date: 20221026
  Serious: Yes (Other)
  Sender: FDA-Public Use
  Company Number: 2022A294885

PATIENT
  Sex: Male

DRUGS (1)
  1. DURVALUMAB\TREMELIMUMAB [Suspect]
     Active Substance: DURVALUMAB\TREMELIMUMAB
     Indication: Hepatocellular carcinoma
     Route: 042
     Dates: start: 20220524, end: 20220712

REACTIONS (1)
  - Malignant neoplasm progression [Unknown]
